FAERS Safety Report 9434669 (Version 1)
Quarter: 2013Q3

REPORT INFORMATION
  Report Type: Spontaneous
  Country: BR (occurrence: BR)
  Receive Date: 20130801
  Receipt Date: 20130801
  Transmission Date: 20140515
  Serious: Yes (Hospitalization)
  Sender: FDA-Public Use
  Company Number: BR-NOVOPROD-384100

PATIENT
  Sex: Male
  Weight: 74 kg

DRUGS (4)
  1. NOVOLIN N [Suspect]
     Indication: TYPE 2 DIABETES MELLITUS
     Dosage: 54 U, QD (34 MORNING, 10 LUNCH, 10 DINNER)
     Route: 058
     Dates: start: 201201
  2. NOVOLIN R [Suspect]
     Indication: TYPE 2 DIABETES MELLITUS
     Dosage: 30 U, QD (10 MORNING, 10 LUNCH, 10 DINNER)
     Route: 065
     Dates: start: 201201
  3. GLUCOFORMIN [Suspect]
     Indication: TYPE 2 DIABETES MELLITUS
     Dosage: UNK (3 TABS)
     Route: 048
  4. LANTUS [Concomitant]
     Indication: TYPE 2 DIABETES MELLITUS
     Dosage: 56 U, QD (40 MORNING 8 LUNCH 8 DINNER)
     Route: 058
     Dates: start: 201209

REACTIONS (1)
  - Localised infection [Unknown]
